FAERS Safety Report 5528072-1 (Version None)
Quarter: 2007Q4

REPORT INFORMATION
  Report Type: 
  Country: None (occurrence: None)
  Receive Date: 20071126
  Receipt Date: 20071126
  Transmission Date: 20080405
  Serious: No
  Sender: FDA-Public Use
  Company Number: None

PATIENT
  Age: 70 Year
  Sex: Male
  Weight: 79.3795 kg

DRUGS (1)
  1. VYTORIN [Suspect]
     Dosage: 10/40 PM

REACTIONS (3)
  - CONSTIPATION [None]
  - MUSCULOSKELETAL PAIN [None]
  - SLEEP DISORDER [None]
